FAERS Safety Report 17545570 (Version 1)
Quarter: 2020Q1

REPORT INFORMATION
  Report Type: Report from Study
  Country: None (occurrence: BR)
  Receive Date: 20200316
  Receipt Date: 20200316
  Transmission Date: 20200409
  Serious: Yes (Other)
  Sender: FDA-Public Use
  Company Number: BR-ABBVIE-20K-020-3317633-00

PATIENT
  Age: 67 Year
  Sex: Female
  Weight: 52 kg

DRUGS (2)
  1. ENALAPRIL [Concomitant]
     Active Substance: ENALAPRIL
     Indication: HYPERTENSION
  2. HUMIRA [Suspect]
     Active Substance: ADALIMUMAB
     Indication: RHEUMATOID ARTHRITIS
     Route: 058
     Dates: start: 20180424, end: 202002

REACTIONS (13)
  - Catheter placement [Unknown]
  - Stent placement [Unknown]
  - Injection site pain [Recovered/Resolved]
  - Mobility decreased [Unknown]
  - Venous occlusion [Recovered/Resolved]
  - Product administered at inappropriate site [Unknown]
  - Hyperhidrosis [Recovered/Resolved]
  - Weight bearing difficulty [Unknown]
  - Pain [Recovered/Resolved]
  - Cardiomegaly [Recovered/Resolved]
  - Influenza [Recovering/Resolving]
  - Dyspnoea [Recovered/Resolved]
  - Malaise [Recovered/Resolved]

NARRATIVE: CASE EVENT DATE: 201904
